FAERS Safety Report 6055873-6 (Version None)
Quarter: 2009Q1

REPORT INFORMATION
  Report Type: 
  Country: None (occurrence: None)
  Receive Date: 20090126
  Receipt Date: 20090108
  Transmission Date: 20090719
  Serious: Yes (Hospitalization, Other)
  Sender: FDA-Public Use
  Company Number: 136406

PATIENT
  Age: 52 Year
  Sex: Male
  Weight: 80 kg

DRUGS (2)
  1. MORPHINE [Suspect]
     Indication: CHEST PAIN
     Dosage: 5 MG, STATUM, AS NECESSARY, INTRAVENOUS
     Route: 042
     Dates: start: 20090104, end: 20090104
  2. NITROGLYCERIN [Concomitant]

REACTIONS (7)
  - ALTERED STATE OF CONSCIOUSNESS [None]
  - BRADYCARDIA [None]
  - CONFUSIONAL STATE [None]
  - HOT FLUSH [None]
  - HYPOTENSION [None]
  - MYOCARDIAL INFARCTION [None]
  - PAIN [None]
